FAERS Safety Report 24571979 (Version 1)
Quarter: 2024Q4

REPORT INFORMATION
  Report Type: Report from Study
  Country: CA (occurrence: CA)
  Receive Date: 20241101
  Receipt Date: 20241101
  Transmission Date: 20250114
  Serious: Yes (Hospitalization)
  Sender: OTSUKA
  Company Number: CA-OTSUKA-2024_011198

PATIENT
  Age: 34 Year
  Sex: Female

DRUGS (3)
  1. TOLVAPTAN [Suspect]
     Active Substance: TOLVAPTAN
     Indication: Congenital cystic kidney disease
     Dosage: 60 MG
     Route: 048
     Dates: start: 20240413
  2. TOLVAPTAN [Suspect]
     Active Substance: TOLVAPTAN
     Dosage: 45 MG, QD (MORNING (AM))
     Route: 048
     Dates: start: 20240403
  3. TOLVAPTAN [Suspect]
     Active Substance: TOLVAPTAN
     Dosage: 15 MG, QD (EVENING (PM))
     Route: 048
     Dates: start: 20240403

REACTIONS (9)
  - Knee operation [Unknown]
  - Illness [Unknown]
  - Renal pain [Unknown]
  - Asthenia [Unknown]
  - Polydipsia [Unknown]
  - Dry mouth [Unknown]
  - Nocturia [Recovering/Resolving]
  - Decreased appetite [Unknown]
  - Thirst [Unknown]

NARRATIVE: CASE EVENT DATE: 20240401
